FAERS Safety Report 10273921 (Version 1)
Quarter: 2014Q1

REPORT INFORMATION
  Report Type: Spontaneous
  Country: US (occurrence: None)
  Receive Date: 20140306
  Receipt Date: 20140306
  Transmission Date: 20141002
  Serious: Yes (Other)
  Sender: FDA-Public Use
  Company Number: 163-21880-13120937

PATIENT
  Age: 65 Year
  Sex: Female
  Weight: 90.72 kg

DRUGS (12)
  1. REVLIMID [Suspect]
     Indication: PLASMA CELL MYELOMA
     Route: 048
     Dates: start: 201008, end: 2010
  2. GABAPENTIN (GABAPENTIN) [Concomitant]
  3. CALCITRIOL (CALCITRIOL) [Concomitant]
  4. EFFEXOR (VENLAFAXINE HYDROCHLORIDE) [Concomitant]
  5. ALLOPURINOL (ALLOPURINOL) [Concomitant]
  6. XANAX (ALPRAZOLAM) [Concomitant]
  7. CLONIDINE (CLONIDINE) [Concomitant]
  8. DEXILANT (DEXLANSOPRAZOLE) [Concomitant]
  9. MORPHINE (MORPHINE) [Concomitant]
  10. SIMVASTATIN (SIMVASTATIN) [Concomitant]
  11. ANTIBIOTICS (ANTIBIOTICS) [Concomitant]
  12. CHEST CONGESTION MEDICATION (GUAIFENESIN) [Concomitant]

REACTIONS (4)
  - Myocardial infarction [None]
  - Nausea [None]
  - Vomiting [None]
  - Fall [None]
